FAERS Safety Report 9827462 (Version 2)
Quarter: 2014Q1

REPORT INFORMATION
  Report Type: Spontaneous
  Country: US (occurrence: US)
  Receive Date: 20140117
  Receipt Date: 20140220
  Transmission Date: 20141002
  Serious: No
  Sender: FDA-Public Use
  Company Number: US-009507513-1401USA007619

PATIENT
  Age: 26 Year
  Sex: Female
  Weight: 77.98 kg

DRUGS (5)
  1. OXYTROL FOR WOMEN [Suspect]
     Indication: HYPERTONIC BLADDER
     Dosage: UNK, Q4D
     Route: 062
     Dates: start: 20131203, end: 20140101
  2. TRAZODONE HYDROCHLORIDE [Concomitant]
     Indication: ANXIETY
     Dosage: UNK, UNKNOWN
  3. CITALOPRAM [Concomitant]
     Indication: ANXIETY
     Dosage: UNK, UNKNOWN
  4. APRI [Concomitant]
     Indication: CONTRACEPTION
     Dosage: UNK, UNKNOWN
  5. ONE-A-DAY WOMEN^S [Concomitant]
     Indication: ROUTINE HEALTH MAINTENANCE
     Dosage: UNK, UNKNOWN

REACTIONS (3)
  - Application site erythema [Recovered/Resolved]
  - Product quality issue [Unknown]
  - Product adhesion issue [Unknown]
